FAERS Safety Report 8580361-2 (Version None)
Quarter: 2012Q3

REPORT INFORMATION
  Report Type: 
  Country: None (occurrence: None)
  Receive Date: 20120808
  Receipt Date: 20110606
  Transmission Date: 20120928
  Serious: Yes (Other)
  Sender: FDA-Public Use
  Company Number: US-BRISTOL-MYERS SQUIBB COMPANY-15121700

PATIENT
  Age: 47 Year
  Sex: Male

DRUGS (7)
  1. ARIPIPRAZOLE [Suspect]
     Indication: SCHIZOPHRENIA
     Dates: end: 20100301
  2. LORTAB [Concomitant]
     Dates: start: 20090520
  3. HYDROCHLOROTHIAZIDE [Concomitant]
     Dates: start: 20090520
  4. METHOCARBAMOL [Concomitant]
     Dates: start: 20090814
  5. DIAZEPAM [Concomitant]
     Dates: start: 20080101
  6. LISINOPRIL [Concomitant]
     Dates: start: 20090520
  7. IBUPROFEN [Concomitant]
     Dates: start: 20060704

REACTIONS (1)
  - PSYCHOTIC DISORDER [None]
